FAERS Safety Report 16152315 (Version 2)
Quarter: 2019Q2

REPORT INFORMATION
  Report Type: Report from Study
  Country: US (occurrence: US)
  Receive Date: 20190403
  Receipt Date: 20190516
  Transmission Date: 20190711
  Serious: Yes (Other)
  Sender: FDA-Public Use
  Company Number: PHEH2019US013930

PATIENT
  Sex: Female

DRUGS (1)
  1. GILENYA [Suspect]
     Active Substance: FINGOLIMOD HYDROCHLORIDE
     Indication: MULTIPLE SCLEROSIS
     Dosage: 0.5 MG, QD
     Route: 048
     Dates: start: 20180822

REACTIONS (16)
  - Narcolepsy [Unknown]
  - Somnolence [Unknown]
  - Liver function test increased [Unknown]
  - Sinusitis [Unknown]
  - Gait disturbance [Unknown]
  - Anxiety [Unknown]
  - Muscle spasms [Unknown]
  - Fibromyalgia [Unknown]
  - Muscular weakness [Unknown]
  - Influenza [Unknown]
  - Chromaturia [Unknown]
  - Bronchitis [Unknown]
  - Gastrointestinal infection [Unknown]
  - Bradycardia [Unknown]
  - Fatigue [Unknown]
  - Supraventricular tachycardia [Not Recovered/Not Resolved]
